FAERS Safety Report 6902933-0 (Version None)
Quarter: 2010Q3

REPORT INFORMATION
  Report Type: 
  Country: None (occurrence: None)
  Receive Date: 20100803
  Receipt Date: 20080705
  Transmission Date: 20110219
  Serious: No
  Sender: FDA-Public Use
  Company Number: US-PFIZER INC-2008042103

PATIENT
  Sex: Male
  Weight: 79.5 kg

DRUGS (4)
  1. LYRICA [Suspect]
     Indication: NEURALGIA
     Dates: start: 20080513
  2. VICODIN [Concomitant]
  3. MEDROL [Concomitant]
     Dates: start: 20080508
  4. MOTRIN [Concomitant]

REACTIONS (12)
  - ASTHENIA [None]
  - CONFUSIONAL STATE [None]
  - DECREASED APPETITE [None]
  - DISORIENTATION [None]
  - DIZZINESS [None]
  - FATIGUE [None]
  - FEELING ABNORMAL [None]
  - NAUSEA [None]
  - NECK PAIN [None]
  - NERVE COMPRESSION [None]
  - PAIN [None]
  - VOMITING [None]
